FAERS Safety Report 7693854-7 (Version None)
Quarter: 2011Q3

REPORT INFORMATION
  Report Type: 
  Country: None (occurrence: None)
  Receive Date: 20110819
  Receipt Date: 20110811
  Transmission Date: 20111222
  Serious: Yes (Hospitalization)
  Sender: FDA-Public Use
  Company Number: US-SANOFI-AVENTIS-2011SA008298

PATIENT
  Age: 77 Year
  Sex: Male
  Weight: 86 kg

DRUGS (10)
  1. FUROSEMIDE [Concomitant]
  2. LISINOPRIL [Concomitant]
  3. GLYBURIDE [Concomitant]
  4. METFFORMIN HYDROCHLORIDE [Concomitant]
  5. ATENOLOL [Concomitant]
  6. PRAVACHOL [Concomitant]
  7. WARFARIN SODIUM [Concomitant]
     Dosage: 3.5 MG WEEKLY
  8. DRONEDARONE HCL [Suspect]
     Indication: ATRIAL FIBRILLATION
     Route: 048
     Dates: start: 20101021, end: 20110203
  9. LANOXIN [Concomitant]
  10. MULTIVITAMIN [Concomitant]

REACTIONS (3)
  - RENAL CANCER [None]
  - PERITONEAL HAEMORRHAGE [None]
  - TACHYCARDIA [None]
